FAERS Safety Report 8773588 (Version 2)
Quarter: 2012Q4

REPORT INFORMATION
  Report Type: 
  Country: AU (occurrence: AU)
  Receive Date: 20120911
  Receipt Date: 20120913
  Transmission Date: 20130627
  Serious: Yes (Other)
  Sender: FDA-Public Use
  Company Number: PHHY2012AU077403

PATIENT
  Age: 34 Year
  Sex: Male

DRUGS (2)
  1. CLOZARIL [Suspect]
     Dosage: 450 mg, nocte
     Dates: start: 2007
  2. QUETIAPINE [Concomitant]

REACTIONS (5)
  - Left ventricular dysfunction [Unknown]
  - Ejection fraction decreased [Unknown]
  - Systolic dysfunction [Unknown]
  - Myocardial infarction [Unknown]
  - Antipsychotic drug level increased [Unknown]
